FAERS Safety Report 9135304 (Version 1)
Quarter: 2013Q1

REPORT INFORMATION
  Report Type: Spontaneous
  Country: US (occurrence: US)
  Receive Date: 20130304
  Receipt Date: 20130304
  Transmission Date: 20140127
  Serious: No
  Sender: FDA-Public Use
  Company Number: US-ENDO PHARMACEUTICALS INC.-ENDC20110052

PATIENT
  Sex: Male
  Weight: 93.07 kg

DRUGS (2)
  1. ENDOCET [Suspect]
     Indication: CLAVICLE FRACTURE
     Dosage: 20/650 MG
     Route: 048
  2. ENDOCET [Suspect]
     Indication: FRACTURE

REACTIONS (5)
  - Weight increased [Unknown]
  - Feeling drunk [Unknown]
  - Dizziness [Unknown]
  - Insomnia [Unknown]
  - Dry mouth [Not Recovered/Not Resolved]
